FAERS Safety Report 16682125 (Version 1)
Quarter: 2019Q3

REPORT INFORMATION
  Report Type: Spontaneous
  Country: FR (occurrence: FR)
  Receive Date: 20190808
  Receipt Date: 20190808
  Transmission Date: 20191004
  Serious: Yes (Congenital Anomaly, Other)
  Sender: FDA-Public Use
  Company Number: FR-PFIZER INC-2019331939

PATIENT

DRUGS (2)
  1. MIFEPRISTONE [Suspect]
     Active Substance: MIFEPRISTONE
     Dosage: UNK
     Route: 064
     Dates: start: 20190423, end: 20190423
  2. MISOPROSTOL. [Suspect]
     Active Substance: MISOPROSTOL
     Dosage: UNK
     Route: 064
     Dates: start: 20190423, end: 20190423

REACTIONS (4)
  - Talipes [Not Recovered/Not Resolved]
  - Limb hypoplasia congenital [Not Recovered/Not Resolved]
  - Exposure during pregnancy [Not Recovered/Not Resolved]
  - Congenital limb hyperextension [Not Recovered/Not Resolved]
